FAERS Safety Report 6865768-3 (Version None)
Quarter: 2010Q3

REPORT INFORMATION
  Report Type: 
  Country: None (occurrence: None)
  Receive Date: 20100721
  Receipt Date: 20080513
  Transmission Date: 20110219
  Serious: No
  Sender: FDA-Public Use
  Company Number: US-PFIZER INC-2008037850

PATIENT
  Sex: Male
  Weight: 90 kg

DRUGS (2)
  1. CHANTIX [Suspect]
  2. XANAX [Concomitant]

REACTIONS (2)
  - DENTAL CARE [None]
  - DRUG INEFFECTIVE [None]
